FAERS Safety Report 4796218-9 (Version None)
Quarter: 2005Q4

REPORT INFORMATION
  Report Type: 
  Country: None (occurrence: None)
  Receive Date: 20051007
  Receipt Date: 20041122
  Transmission Date: 20060501
  Serious: Yes (Hospitalization)
  Sender: FDA-Public Use
  Company Number: 2004096810

PATIENT
  Age: 82 Year
  Sex: Female
  Weight: 58.9676 kg

DRUGS (10)
  1. DETROL LA [Suspect]
     Indication: HYPERTONIC BLADDER
     Dosage: SEE IMAGE
     Route: 048
     Dates: start: 20040801
  2. ASPIRIN [Concomitant]
  3. HYDROCHLOROTHIAZIDE [Concomitant]
  4. IRON (IRON) [Concomitant]
  5. ERGOCALCIFEROL (ERGOCALCIFEROL) [Concomitant]
  6. CLOPIDOGREL BISULFATE [Concomitant]
  7. FEXOFENADINE HYDROCHLORIDE [Concomitant]
  8. METOPROLOL SUCCINATE [Concomitant]
  9. CLONIDINE [Concomitant]
  10. ESTROGENS CONJUGATES (ESTROGENS CONJUGATED) [Concomitant]

REACTIONS (3)
  - BACTERIAL INFECTION [None]
  - DRUG INEFFECTIVE [None]
  - SLEEP DISORDER [None]
